FAERS Safety Report 8518108 (Version 4)
Quarter: 2013Q3

REPORT INFORMATION
  Report Type: Report from Study
  Country: None (occurrence: US)
  Receive Date: 20120417
  Receipt Date: 20130911
  Transmission Date: 20140515
  Serious: Yes (Hospitalization, Other)
  Sender: FDA-Public Use
  Company Number: US-ABBOTT-12P-163-0926207-00

PATIENT
  Age: 58 Year
  Sex: Male
  Weight: 116.22 kg

DRUGS (9)
  1. ANDROGEL 1.62% [Suspect]
     Indication: BLOOD TESTOSTERONE DECREASED
     Dosage: 4 PUMPS PER DAY
     Route: 061
     Dates: start: 201201
  2. ANDROGEL 1% [Suspect]
     Indication: BLOOD TESTOSTERONE DECREASED
     Dosage: SIX PUMPS ONCE DAILY
     Route: 061
     Dates: start: 201101
  3. ANDROGEL 1% [Suspect]
     Dosage: EIGHT PUMPS
     Route: 061
     Dates: end: 201201
  4. UNKNOWN ANESTHESIA [Suspect]
     Indication: CARDIAC PACEMAKER INSERTION
     Dates: start: 20120330, end: 20120330
  5. COUMADIN [Suspect]
     Indication: CARDIAC PACEMAKER INSERTION
     Dates: start: 20120330, end: 201204
  6. ASPIRIN [Concomitant]
     Indication: PRODUCT USED FOR UNKNOWN INDICATION
     Route: 048
  7. PRILOSEC [Concomitant]
     Indication: PRODUCT USED FOR UNKNOWN INDICATION
     Route: 048
  8. UROCIT-K [Concomitant]
     Indication: NEPHROLITHIASIS
     Route: 048
     Dates: end: 20120330
  9. SAW PALMETTO [Concomitant]
     Indication: PROSTATOMEGALY
     Dates: start: 201204

REACTIONS (25)
  - Cardiac arrest [Recovered/Resolved]
  - Cardiac failure [Recovered/Resolved]
  - Fall [Not Recovered/Not Resolved]
  - Head injury [Recovered/Resolved]
  - Bronchitis [Recovering/Resolving]
  - Blood potassium increased [Recovered/Resolved]
  - Suffocation feeling [Recovered/Resolved]
  - Dyspnoea [Recovered/Resolved]
  - Restlessness [Recovered/Resolved]
  - Hyperhidrosis [Recovered/Resolved]
  - Pyrexia [Recovered/Resolved]
  - Cardiac arrest [Recovered/Resolved]
  - Heart rate increased [Recovered/Resolved]
  - Prostatomegaly [Recovering/Resolving]
  - Cough [Recovering/Resolving]
  - Constipation [Not Recovered/Not Resolved]
  - Upper respiratory tract congestion [Recovered/Resolved]
  - Sinus congestion [Recovered/Resolved]
  - Sleep apnoea syndrome [Not Recovered/Not Resolved]
  - Nerve compression [Not Recovered/Not Resolved]
  - Contusion [Recovered/Resolved]
  - Asthenia [Not Recovered/Not Resolved]
  - Drug ineffective [Not Recovered/Not Resolved]
  - Erectile dysfunction [Not Recovered/Not Resolved]
  - Thyroid cancer [Recovered/Resolved]
